FAERS Safety Report 8177297-8 (Version None)
Quarter: 2012Q1

REPORT INFORMATION
  Report Type: 
  Country: None (occurrence: None)
  Receive Date: 20120301
  Receipt Date: 20120223
  Transmission Date: 20120608
  Serious: Yes (Hospitalization)
  Sender: FDA-Public Use
  Company Number: FR-PFIZER INC-2012047686

PATIENT
  Age: 90 Year
  Sex: Female

DRUGS (4)
  1. FLUCONAZOLE [Suspect]
     Indication: ORAL FUNGAL INFECTION
     Dosage: 50 MG, 2X/DAY
     Route: 048
     Dates: start: 20111118, end: 20111216
  2. CLOBETASOL PROPIONATE [Concomitant]
     Indication: PEMPHIGOID
     Dosage: 3 DF PER DAY
     Dates: start: 20110901
  3. PREVISCAN [Concomitant]
     Indication: DEEP VEIN THROMBOSIS
     Dosage: 15 MG, 1X/DAY
     Route: 048
     Dates: start: 20111207
  4. DAPSONE [Suspect]
     Indication: PEMPHIGOID
     Dosage: 100 MG, 1X/DAY
     Route: 048
     Dates: start: 20111029, end: 20111216

REACTIONS (1)
  - DRUG RASH WITH EOSINOPHILIA AND SYSTEMIC SYMPTOMS [None]
